FAERS Safety Report 12202421 (Version 1)
Quarter: 2016Q1

REPORT INFORMATION
  Report Type: Spontaneous
  Country: US (occurrence: US)
  Receive Date: 20160322
  Receipt Date: 20160322
  Transmission Date: 20160526
  Serious: No
  Sender: FDA-Public Use
  Company Number: US-TEVA-644438USA

PATIENT
  Age: 31 Year
  Sex: Female
  Weight: 63.56 kg

DRUGS (4)
  1. AMBIEN [Concomitant]
     Active Substance: ZOLPIDEM TARTRATE
     Indication: SLEEP DISORDER
  2. PROVIGIL [Suspect]
     Active Substance: MODAFINIL
     Indication: ATTENTION DEFICIT/HYPERACTIVITY DISORDER
     Dosage: 200 MILLIGRAM DAILY;
     Route: 065
     Dates: start: 2012
  3. PROVIGIL [Suspect]
     Active Substance: MODAFINIL
     Dosage: 400 MILLIGRAM DAILY;
     Dates: start: 2012
  4. RITALIN [Suspect]
     Active Substance: METHYLPHENIDATE HYDROCHLORIDE
     Route: 065

REACTIONS (3)
  - Dental caries [Unknown]
  - Off label use [Not Recovered/Not Resolved]
  - Tooth extraction [Recovered/Resolved]

NARRATIVE: CASE EVENT DATE: 2012
